FAERS Safety Report 14967805 (Version 2)
Quarter: 2020Q1

REPORT INFORMATION
  Report Type: Spontaneous
  Country: US (occurrence: US)
  Receive Date: 20180604
  Receipt Date: 20200221
  Transmission Date: 20200409
  Serious: No
  Sender: FDA-Public Use
  Company Number: US-PFIZER INC-2018225280

PATIENT
  Age: 63 Year
  Sex: Male

DRUGS (7)
  1. LYRICA [Suspect]
     Active Substance: PREGABALIN
     Indication: ARTHROPATHY
  2. LYRICA [Suspect]
     Active Substance: PREGABALIN
     Indication: LUMBOSACRAL RADICULOPATHY
  3. LYRICA [Suspect]
     Active Substance: PREGABALIN
     Indication: INTERVERTEBRAL DISC PROTRUSION
  4. LYRICA [Suspect]
     Active Substance: PREGABALIN
     Indication: PARAESTHESIA
  5. LYRICA [Suspect]
     Active Substance: PREGABALIN
     Indication: HYPOAESTHESIA
  6. LYRICA [Suspect]
     Active Substance: PREGABALIN
     Indication: INTERVERTEBRAL DISC ANNULAR TEAR
     Dosage: UNK
  7. LYRICA [Suspect]
     Active Substance: PREGABALIN
     Indication: INTERVERTEBRAL DISC DEGENERATION

REACTIONS (3)
  - Drug ineffective [Unknown]
  - Sleep disorder [Unknown]
  - Restless legs syndrome [Unknown]
